FAERS Safety Report 16184934 (Version 1)
Quarter: 2019Q2

REPORT INFORMATION
  Report Type: Spontaneous
  Country: US (occurrence: US)
  Receive Date: 20190308
  Receipt Date: 20190308
  Transmission Date: 20190711
  Serious: Yes (Other)
  Sender: FDA-Public Use
  Company Number: None

PATIENT
  Age: 51 Year
  Sex: Female
  Weight: 69.4 kg

DRUGS (1)
  1. SYNTHROID [Suspect]
     Active Substance: LEVOTHYROXINE SODIUM
     Indication: GOITRE
     Dates: start: 1987

REACTIONS (6)
  - Fatigue [None]
  - Malaise [None]
  - Dizziness [None]
  - Nausea [None]
  - Vision blurred [None]
  - Product formulation issue [None]

NARRATIVE: CASE EVENT DATE: 20190122
